FAERS Safety Report 6326718-1 (Version None)
Quarter: 2009Q3

REPORT INFORMATION
  Report Type: 
  Country: None (occurrence: None)
  Receive Date: 20090825
  Receipt Date: 20090814
  Transmission Date: 20100115
  Serious: Yes (Death)
  Sender: FDA-Public Use
  Company Number: BE-BAXTER-2009BH012811

PATIENT
  Age: 16 Year
  Sex: Male

DRUGS (4)
  1. SUPRANE [Suspect]
     Indication: ANAESTHESIA
     Route: 055
  2. SUPRANE [Suspect]
     Indication: APPENDICECTOMY
     Route: 055
  3. NITROUS OXIDE [Suspect]
     Indication: ANAESTHESIA
     Route: 055
  4. NITROUS OXIDE [Suspect]
     Indication: APPENDICECTOMY
     Route: 055

REACTIONS (4)
  - ALVEOLITIS [None]
  - COUGH [None]
  - HAEMOPTYSIS [None]
  - RESPIRATORY DISTRESS [None]
